FAERS Safety Report 8894786 (Version 8)
Quarter: 2013Q3

REPORT INFORMATION
  Report Type: Spontaneous
  Country: US (occurrence: US)
  Receive Date: 20121108
  Receipt Date: 20130808
  Transmission Date: 20140515
  Serious: Yes (Hospitalization, Disabling, Other)
  Sender: FDA-Public Use
  Company Number: US-009507513-1210USA012657

PATIENT
  Sex: Male
  Weight: 84.81 kg

DRUGS (8)
  1. FOSAMAX [Suspect]
     Indication: OSTEOPENIA
     Dosage: 10 MG, UNK
     Route: 048
     Dates: start: 20010703, end: 20080304
  2. FOSAMAX [Suspect]
     Indication: OSTEOPOROSIS
     Dosage: 70 MG, UNK
     Route: 048
     Dates: start: 20010703, end: 20080304
  3. ALENDRONATE SODIUM [Suspect]
     Indication: OSTEOPENIA
     Dosage: 70 MG, UNK
     Route: 048
     Dates: start: 20080305, end: 201204
  4. SPIRIVA [Concomitant]
     Indication: ASTHMA
  5. LEVOTHYROXINE SODIUM [Concomitant]
     Indication: HYPOTHYROIDISM
  6. KEPPRA [Concomitant]
     Indication: EPILEPSY
     Dosage: UNK
  7. CALCIUM (UNSPECIFIED) [Concomitant]
     Indication: OSTEOPOROSIS
  8. VITAMIN D (UNSPECIFIED) [Concomitant]
     Indication: OSTEOPOROSIS

REACTIONS (35)
  - Intramedullary rod insertion [Not Recovered/Not Resolved]
  - Femur fracture [Unknown]
  - Limb operation [Unknown]
  - Anaemia postoperative [Unknown]
  - Spinal fusion surgery [Unknown]
  - Disability [Not Recovered/Not Resolved]
  - Asthma [Unknown]
  - Surgery [Unknown]
  - Femur fracture [Not Recovered/Not Resolved]
  - Arthralgia [Unknown]
  - Anxiety [Unknown]
  - Fall [Unknown]
  - Depression [Unknown]
  - Migraine [Unknown]
  - Ulna fracture [Recovered/Resolved with Sequelae]
  - Pain [Not Recovered/Not Resolved]
  - Arthroscopy [Unknown]
  - Bunion operation [Unknown]
  - Arthritis [Unknown]
  - Upper respiratory tract infection [Unknown]
  - Bronchitis [Unknown]
  - Sleep disorder [Unknown]
  - Polyp [Unknown]
  - Anaemia [Unknown]
  - Suicidal ideation [Unknown]
  - Asthma [Unknown]
  - Hypogonadism [Unknown]
  - Rectal haemorrhage [Unknown]
  - Scoliosis [Unknown]
  - Nephrolithiasis [Unknown]
  - Ulcer [Unknown]
  - Insomnia [Unknown]
  - Radius fracture [Recovered/Resolved with Sequelae]
  - Constipation [Unknown]
  - Melaena [Unknown]
